FAERS Safety Report 9661169 (Version 3)
Quarter: 2014Q2

REPORT INFORMATION
  Report Type: Report from Study
  Country: CN (occurrence: CN)
  Receive Date: 20131031
  Receipt Date: 20140428
  Transmission Date: 20141212
  Serious: Yes (Hospitalization, Other)
  Sender: FDA-Public Use
  Company Number: CN-ROCHE-1297033

PATIENT
  Age: 50 Year
  Sex: Male
  Weight: 75 kg

DRUGS (3)
  1. PEGASYS [Suspect]
     Indication: HEPATITIS C
     Route: 058
     Dates: start: 201305, end: 201305
  2. PEGASYS [Suspect]
     Route: 058
     Dates: start: 201307
  3. RIBAVIRIN [Concomitant]
     Indication: HEPATITIS C
     Dosage: 6 TABLETS IN THE MORNING AND 6 IN THE EVENING
     Route: 048
     Dates: start: 201306

REACTIONS (5)
  - Hepatic cancer [Recovered/Resolved]
  - White blood cell count decreased [Not Recovered/Not Resolved]
  - Platelet count decreased [Recovered/Resolved]
  - Dizziness [Recovered/Resolved]
  - Red blood cell count decreased [Recovered/Resolved]
